FAERS Safety Report 23678491 (Version 7)
Quarter: 2025Q3

REPORT INFORMATION
  Report Type: Spontaneous
  Country: CA (occurrence: CA)
  Receive Date: 20240327
  Receipt Date: 20250717
  Transmission Date: 20251020
  Serious: Yes (Death, Life-Threatening, Hospitalization, Disabling, Congenital Anomaly, Other)
  Sender: AMGEN
  Company Number: CA-002147023-NVSC2024CA009468

PATIENT
  Age: 40 Year
  Sex: Female
  Weight: 96 kg

DRUGS (315)
  1. AIMOVIG [Suspect]
     Active Substance: ERENUMAB-AOOE
     Indication: Migraine
     Route: 065
  2. AIMOVIG [Suspect]
     Active Substance: ERENUMAB-AOOE
     Route: 065
  3. AIMOVIG [Suspect]
     Active Substance: ERENUMAB-AOOE
     Route: 065
  4. ENBREL [Suspect]
     Active Substance: ETANERCEPT
     Indication: Rheumatoid arthritis
     Route: 058
  5. ENBREL [Suspect]
     Active Substance: ETANERCEPT
     Route: 058
  6. ENBREL [Suspect]
     Active Substance: ETANERCEPT
     Route: 065
  7. ENBREL [Suspect]
     Active Substance: ETANERCEPT
     Dosage: 10 MILLIGRAM, QWK
     Route: 065
  8. ENBREL [Suspect]
     Active Substance: ETANERCEPT
     Route: 058
  9. ENBREL [Suspect]
     Active Substance: ETANERCEPT
     Route: 058
  10. ENBREL [Suspect]
     Active Substance: ETANERCEPT
     Route: 058
  11. ENBREL [Suspect]
     Active Substance: ETANERCEPT
     Route: 058
  12. ENBREL [Suspect]
     Active Substance: ETANERCEPT
     Route: 058
  13. ENBREL [Suspect]
     Active Substance: ETANERCEPT
     Dosage: 50 MILLIGRAM, QWK
     Route: 058
  14. ENBREL [Suspect]
     Active Substance: ETANERCEPT
     Route: 065
  15. ENBREL [Suspect]
     Active Substance: ETANERCEPT
     Route: 058
  16. ENBREL [Suspect]
     Active Substance: ETANERCEPT
     Route: 065
  17. ENBREL [Suspect]
     Active Substance: ETANERCEPT
     Route: 065
  18. ENBREL [Suspect]
     Active Substance: ETANERCEPT
     Route: 058
  19. ENBREL [Suspect]
     Active Substance: ETANERCEPT
     Route: 065
  20. ADALIMUMAB [Suspect]
     Active Substance: ADALIMUMAB
     Indication: Rheumatoid arthritis
     Route: 058
  21. ADALIMUMAB [Suspect]
     Active Substance: ADALIMUMAB
     Route: 058
  22. ADALIMUMAB [Suspect]
     Active Substance: ADALIMUMAB
     Route: 058
  23. ADALIMUMAB [Suspect]
     Active Substance: ADALIMUMAB
     Route: 058
  24. RITUXIMAB [Suspect]
     Active Substance: RITUXIMAB
     Indication: Rheumatoid arthritis
     Route: 058
  25. RITUXIMAB [Suspect]
     Active Substance: RITUXIMAB
     Route: 040
  26. RITUXIMAB [Suspect]
     Active Substance: RITUXIMAB
     Dosage: 2000 MILLIGRAM, QD
     Route: 065
  27. RITUXIMAB [Suspect]
     Active Substance: RITUXIMAB
     Dosage: 365 MILLIGRAM, QD
     Route: 065
  28. RITUXIMAB [Suspect]
     Active Substance: RITUXIMAB
     Route: 040
  29. RITUXIMAB [Suspect]
     Active Substance: RITUXIMAB
     Dosage: 2000 MILLIGRAM, QD
     Route: 065
  30. RITUXIMAB [Suspect]
     Active Substance: RITUXIMAB
     Route: 040
  31. RITUXIMAB [Suspect]
     Active Substance: RITUXIMAB
     Route: 043
  32. RITUXIMAB [Suspect]
     Active Substance: RITUXIMAB
     Route: 043
  33. RITUXIMAB [Suspect]
     Active Substance: RITUXIMAB
     Dosage: 2000 MILLIGRAM, QD
     Route: 065
  34. RITUXIMAB [Suspect]
     Active Substance: RITUXIMAB
     Dosage: 2 GRAM, QD
     Route: 040
  35. RITUXIMAB [Suspect]
     Active Substance: RITUXIMAB
     Dosage: 2 G, QD
     Route: 040
  36. RITUXIMAB [Suspect]
     Active Substance: RITUXIMAB
     Dosage: 2000 MILLIGRAM, QD
     Route: 065
  37. RITUXIMAB [Suspect]
     Active Substance: RITUXIMAB
     Route: 016
  38. RITUXIMAB [Suspect]
     Active Substance: RITUXIMAB
     Route: 016
  39. RITUXIMAB [Suspect]
     Active Substance: RITUXIMAB
     Route: 016
  40. RITUXIMAB [Suspect]
     Active Substance: RITUXIMAB
     Route: 040
  41. APREMILAST [Suspect]
     Active Substance: APREMILAST
     Indication: Rheumatoid arthritis
     Dosage: 6 MILLIGRAM, QD
     Route: 065
  42. APREMILAST [Suspect]
     Active Substance: APREMILAST
     Route: 065
  43. APREMILAST [Suspect]
     Active Substance: APREMILAST
     Route: 065
  44. ERENUMAB [Suspect]
     Active Substance: ERENUMAB
     Indication: Migraine
     Route: 065
  45. ERENUMAB [Suspect]
     Active Substance: ERENUMAB
     Route: 065
  46. ERENUMAB [Suspect]
     Active Substance: ERENUMAB
     Route: 065
  47. CANDESARTAN [Suspect]
     Active Substance: CANDESARTAN
     Indication: Migraine
     Route: 048
  48. CANDESARTAN [Suspect]
     Active Substance: CANDESARTAN
     Route: 048
  49. CANDESARTAN [Suspect]
     Active Substance: CANDESARTAN
     Route: 048
  50. CANDESARTAN [Suspect]
     Active Substance: CANDESARTAN
     Route: 048
  51. CANDESARTAN [Suspect]
     Active Substance: CANDESARTAN
     Route: 048
  52. ERELZI [Suspect]
     Active Substance: ETANERCEPT-SZZS
     Indication: Rheumatoid arthritis
     Route: 058
  53. ERELZI [Suspect]
     Active Substance: ETANERCEPT-SZZS
     Route: 065
  54. ERELZI [Suspect]
     Active Substance: ETANERCEPT-SZZS
     Route: 065
  55. LEFLUNOMIDE [Suspect]
     Active Substance: LEFLUNOMIDE
     Indication: Rheumatoid arthritis
     Dosage: 10 MG, QD
     Route: 048
  56. LEFLUNOMIDE [Suspect]
     Active Substance: LEFLUNOMIDE
     Dosage: 20 MG, QD
     Route: 065
  57. LEFLUNOMIDE [Suspect]
     Active Substance: LEFLUNOMIDE
     Dosage: 10 MG, QD
     Route: 065
  58. LEFLUNOMIDE [Suspect]
     Active Substance: LEFLUNOMIDE
     Route: 065
  59. LEFLUNOMIDE [Suspect]
     Active Substance: LEFLUNOMIDE
     Route: 048
  60. LEFLUNOMIDE [Suspect]
     Active Substance: LEFLUNOMIDE
     Route: 065
  61. OXYCODONE [Suspect]
     Active Substance: OXYCODONE
     Indication: Product used for unknown indication
     Route: 065
  62. VITAMIN D3 [Suspect]
     Active Substance: CHOLECALCIFEROL
     Indication: Product used for unknown indication
     Route: 065
  63. METHOTREXATE SODIUM [Suspect]
     Active Substance: METHOTREXATE SODIUM
     Indication: Rheumatoid arthritis
     Dosage: 20 MILLIGRAM, QWK
     Route: 048
  64. METHOTREXATE SODIUM [Suspect]
     Active Substance: METHOTREXATE SODIUM
     Route: 048
  65. METHOTREXATE SODIUM [Suspect]
     Active Substance: METHOTREXATE SODIUM
     Route: 048
  66. METHOTREXATE SODIUM [Suspect]
     Active Substance: METHOTREXATE SODIUM
     Dosage: 25 MILLIGRAM, QD
     Route: 048
  67. METHOTREXATE SODIUM [Suspect]
     Active Substance: METHOTREXATE SODIUM
     Route: 065
  68. METHOTREXATE SODIUM [Suspect]
     Active Substance: METHOTREXATE SODIUM
     Route: 016
  69. METHOTREXATE SODIUM [Suspect]
     Active Substance: METHOTREXATE SODIUM
     Route: 065
  70. METHOTREXATE SODIUM [Suspect]
     Active Substance: METHOTREXATE SODIUM
     Route: 013
  71. METHOTREXATE SODIUM [Suspect]
     Active Substance: METHOTREXATE SODIUM
     Route: 048
  72. METHOTREXATE SODIUM [Suspect]
     Active Substance: METHOTREXATE SODIUM
     Route: 048
  73. METHOTREXATE SODIUM [Suspect]
     Active Substance: METHOTREXATE SODIUM
     Dosage: 150 MILLIGRAM, QWK
     Route: 058
  74. METHOTREXATE SODIUM [Suspect]
     Active Substance: METHOTREXATE SODIUM
     Dosage: 25 MILLIGRAM, QWK
     Route: 013
  75. METHOTREXATE SODIUM [Suspect]
     Active Substance: METHOTREXATE SODIUM
     Dosage: 50 MILLIGRAM, QD
     Route: 048
  76. METHOTREXATE SODIUM [Suspect]
     Active Substance: METHOTREXATE SODIUM
     Dosage: 25 MILLIGRAM, QWK
     Route: 048
  77. METHOTREXATE SODIUM [Suspect]
     Active Substance: METHOTREXATE SODIUM
     Dosage: 25 MILLIGRAM, QWK
     Route: 013
  78. METHOTREXATE SODIUM [Suspect]
     Active Substance: METHOTREXATE SODIUM
     Route: 048
  79. METHOTREXATE SODIUM [Suspect]
     Active Substance: METHOTREXATE SODIUM
     Dosage: 25 MILLIGRAM, QWK
     Route: 048
  80. METHOTREXATE SODIUM [Suspect]
     Active Substance: METHOTREXATE SODIUM
     Dosage: 20 MILLIGRAM, QD
     Route: 048
  81. METHOTREXATE SODIUM [Suspect]
     Active Substance: METHOTREXATE SODIUM
     Dosage: 25 MILLIGRAM, QWK
     Route: 065
  82. METHOTREXATE SODIUM [Suspect]
     Active Substance: METHOTREXATE SODIUM
     Route: 058
  83. COSENTYX [Suspect]
     Active Substance: SECUKINUMAB
     Indication: Rheumatoid arthritis
     Route: 065
  84. COSENTYX [Suspect]
     Active Substance: SECUKINUMAB
     Indication: Psoriatic arthropathy
     Route: 065
  85. COSENTYX [Suspect]
     Active Substance: SECUKINUMAB
     Route: 065
  86. VOLTAREN [Suspect]
     Active Substance: DICLOFENAC SODIUM
     Indication: Product used for unknown indication
     Route: 065
  87. VOLTAREN [Suspect]
     Active Substance: DICLOFENAC SODIUM
     Route: 058
  88. VOLTAREN [Suspect]
     Active Substance: DICLOFENAC SODIUM
     Route: 065
  89. VOLTAREN [Suspect]
     Active Substance: DICLOFENAC SODIUM
     Route: 065
  90. DICLOFENAC DIETHYLAMINE [Suspect]
     Active Substance: DICLOFENAC DIETHYLAMINE
     Indication: Product used for unknown indication
     Route: 065
  91. TOPIRAMATE [Suspect]
     Active Substance: TOPIRAMATE
     Indication: Migraine
     Dosage: 25 MILLIGRAM, QD
     Route: 065
  92. TOPIRAMATE [Suspect]
     Active Substance: TOPIRAMATE
     Dosage: 3 MILLIGRAM, QD
     Route: 065
  93. TOPIRAMATE [Suspect]
     Active Substance: TOPIRAMATE
     Dosage: 25 MILLIGRAM, QD
     Route: 065
  94. DICLOFENAC SODIUM [Suspect]
     Active Substance: DICLOFENAC SODIUM
     Indication: Product used for unknown indication
     Route: 065
  95. DICLOFENAC SODIUM [Suspect]
     Active Substance: DICLOFENAC SODIUM
     Route: 065
  96. DICLOFENAC SODIUM [Suspect]
     Active Substance: DICLOFENAC SODIUM
     Route: 058
  97. DICLOFENAC SODIUM [Suspect]
     Active Substance: DICLOFENAC SODIUM
     Route: 065
  98. PHENYLEPHRINE HYDROCHLORIDE [Suspect]
     Active Substance: PHENYLEPHRINE HYDROCHLORIDE
     Indication: Rheumatoid arthritis
     Route: 065
  99. DICLOFENAC SODIUM [Suspect]
     Active Substance: DICLOFENAC SODIUM
     Indication: Product used for unknown indication
     Route: 065
  100. DICLOFENAC SODIUM [Suspect]
     Active Substance: DICLOFENAC SODIUM
     Route: 058
  101. DICLOFENAC SODIUM [Suspect]
     Active Substance: DICLOFENAC SODIUM
     Route: 065
  102. ALENDRONIC ACID [Suspect]
     Active Substance: ALENDRONIC ACID
     Indication: Rheumatoid arthritis
     Route: 016
  103. ALENDRONIC ACID [Suspect]
     Active Substance: ALENDRONIC ACID
     Route: 048
  104. ALENDRONIC ACID [Suspect]
     Active Substance: ALENDRONIC ACID
     Route: 065
  105. ALENDRONIC ACID [Suspect]
     Active Substance: ALENDRONIC ACID
     Route: 048
  106. ALENDRONIC ACID [Suspect]
     Active Substance: ALENDRONIC ACID
     Route: 065
  107. ALENDRONIC ACID [Suspect]
     Active Substance: ALENDRONIC ACID
     Route: 065
  108. ALENDRONIC ACID [Suspect]
     Active Substance: ALENDRONIC ACID
     Route: 048
  109. DICLOFENAC DIETHYLAMINE [Suspect]
     Active Substance: DICLOFENAC DIETHYLAMINE
     Indication: Product used for unknown indication
     Route: 065
  110. RITUXAN [Suspect]
     Active Substance: RITUXIMAB
     Indication: Rheumatoid arthritis
     Route: 058
  111. RITUXAN [Suspect]
     Active Substance: RITUXIMAB
     Dosage: UNK, QD
     Route: 040
  112. RITUXAN [Suspect]
     Active Substance: RITUXIMAB
     Dosage: 2000 MG, QD
     Route: 065
  113. RITUXAN [Suspect]
     Active Substance: RITUXIMAB
     Dosage: 365 MG, QD
     Route: 065
  114. RITUXAN [Suspect]
     Active Substance: RITUXIMAB
     Route: 040
  115. RITUXAN [Suspect]
     Active Substance: RITUXIMAB
     Dosage: 2000 MG, QD
     Route: 065
  116. RITUXAN [Suspect]
     Active Substance: RITUXIMAB
     Route: 043
  117. RITUXAN [Suspect]
     Active Substance: RITUXIMAB
     Route: 058
  118. RITUXAN [Suspect]
     Active Substance: RITUXIMAB
     Dosage: 2000 MG, QD
     Route: 065
  119. RITUXAN [Suspect]
     Active Substance: RITUXIMAB
     Route: 016
  120. RITUXAN [Suspect]
     Active Substance: RITUXIMAB
     Route: 016
  121. RITUXAN [Suspect]
     Active Substance: RITUXIMAB
     Route: 016
  122. RITUXAN [Suspect]
     Active Substance: RITUXIMAB
     Dosage: 2 G, QD
     Route: 040
  123. RITUXAN [Suspect]
     Active Substance: RITUXIMAB
     Dosage: 2 G, QD
     Route: 040
  124. RITUXAN [Suspect]
     Active Substance: RITUXIMAB
     Dosage: 2000 MG, QD
     Route: 040
  125. ACETAMINOPHEN [Suspect]
     Active Substance: ACETAMINOPHEN
     Indication: Rheumatoid arthritis
     Route: 065
  126. ACETAMINOPHEN [Suspect]
     Active Substance: ACETAMINOPHEN
     Route: 065
  127. ACETAMINOPHEN [Suspect]
     Active Substance: ACETAMINOPHEN
     Route: 065
  128. ACETAMINOPHEN [Suspect]
     Active Substance: ACETAMINOPHEN
     Route: 065
  129. ACETAMINOPHEN [Suspect]
     Active Substance: ACETAMINOPHEN
     Route: 065
  130. ACETAMINOPHEN [Suspect]
     Active Substance: ACETAMINOPHEN
     Route: 065
  131. ACTEMRA [Suspect]
     Active Substance: TOCILIZUMAB
     Indication: Rheumatoid arthritis
     Route: 016
  132. ACTEMRA [Suspect]
     Active Substance: TOCILIZUMAB
     Route: 058
  133. ACTEMRA [Suspect]
     Active Substance: TOCILIZUMAB
     Route: 065
  134. ACTEMRA [Suspect]
     Active Substance: TOCILIZUMAB
     Route: 065
  135. ACTEMRA [Suspect]
     Active Substance: TOCILIZUMAB
     Route: 058
  136. ACTEMRA [Suspect]
     Active Substance: TOCILIZUMAB
     Route: 065
  137. ACTEMRA [Suspect]
     Active Substance: TOCILIZUMAB
     Route: 065
  138. ACTEMRA [Suspect]
     Active Substance: TOCILIZUMAB
     Route: 050
  139. ACTEMRA [Suspect]
     Active Substance: TOCILIZUMAB
     Route: 065
  140. ACTEMRA [Suspect]
     Active Substance: TOCILIZUMAB
     Route: 065
  141. ACTEMRA [Suspect]
     Active Substance: TOCILIZUMAB
     Route: 065
  142. ACTEMRA [Suspect]
     Active Substance: TOCILIZUMAB
     Route: 058
  143. ACTEMRA [Suspect]
     Active Substance: TOCILIZUMAB
     Route: 058
  144. ACTEMRA [Suspect]
     Active Substance: TOCILIZUMAB
     Route: 058
  145. ACTEMRA [Suspect]
     Active Substance: TOCILIZUMAB
     Route: 058
  146. ACTEMRA [Suspect]
     Active Substance: TOCILIZUMAB
     Dosage: 25 MG, QW
     Route: 058
  147. ACTEMRA [Suspect]
     Active Substance: TOCILIZUMAB
     Route: 058
  148. ACTEMRA [Suspect]
     Active Substance: TOCILIZUMAB
     Route: 065
  149. LEFLUNOMIDE [Suspect]
     Active Substance: LEFLUNOMIDE
     Indication: Rheumatoid arthritis
     Route: 065
  150. LEFLUNOMIDE [Suspect]
     Active Substance: LEFLUNOMIDE
     Route: 048
  151. LEFLUNOMIDE [Suspect]
     Active Substance: LEFLUNOMIDE
     Route: 065
  152. PREDNISONE [Suspect]
     Active Substance: PREDNISONE
     Indication: Rheumatoid arthritis
     Route: 065
  153. PREDNISONE [Suspect]
     Active Substance: PREDNISONE
     Dosage: 20 MILLIGRAM, QD
     Route: 048
  154. PREDNISONE [Suspect]
     Active Substance: PREDNISONE
     Dosage: 5 MILLIGRAM, QD
     Route: 048
  155. PREDNISONE [Suspect]
     Active Substance: PREDNISONE
     Route: 065
  156. PREDNISONE [Suspect]
     Active Substance: PREDNISONE
     Route: 065
  157. PREDNISONE [Suspect]
     Active Substance: PREDNISONE
     Route: 048
  158. PREDNISONE [Suspect]
     Active Substance: PREDNISONE
     Route: 065
  159. PREDNISONE [Suspect]
     Active Substance: PREDNISONE
     Route: 065
  160. PREDNISONE [Suspect]
     Active Substance: PREDNISONE
     Route: 048
  161. PREDNISONE [Suspect]
     Active Substance: PREDNISONE
     Route: 065
  162. PREDNISONE [Suspect]
     Active Substance: PREDNISONE
     Route: 048
  163. ARAVA [Suspect]
     Active Substance: LEFLUNOMIDE
     Indication: Rheumatoid arthritis
     Dosage: 20 MILLIGRAM, QD
     Route: 048
  164. ARAVA [Suspect]
     Active Substance: LEFLUNOMIDE
     Route: 048
  165. ARAVA [Suspect]
     Active Substance: LEFLUNOMIDE
     Route: 048
  166. ARAVA [Suspect]
     Active Substance: LEFLUNOMIDE
     Route: 048
  167. ARAVA [Suspect]
     Active Substance: LEFLUNOMIDE
     Route: 065
  168. ARAVA [Suspect]
     Active Substance: LEFLUNOMIDE
     Route: 065
  169. ARAVA [Suspect]
     Active Substance: LEFLUNOMIDE
     Route: 065
  170. ARAVA [Suspect]
     Active Substance: LEFLUNOMIDE
     Route: 065
  171. ARAVA [Suspect]
     Active Substance: LEFLUNOMIDE
     Route: 065
  172. AZATHIOPRINE SODIUM [Suspect]
     Active Substance: AZATHIOPRINE SODIUM
     Indication: Product used for unknown indication
     Route: 065
  173. BERINERT [Suspect]
     Active Substance: HUMAN C1-ESTERASE INHIBITOR
     Indication: Product used for unknown indication
     Route: 065
  174. BOTULINUM TOXIN TYPE A [Suspect]
     Active Substance: BOTULINUM TOXIN TYPE A
     Indication: Product used for unknown indication
     Route: 065
  175. BUTRANS [Suspect]
     Active Substance: BUPRENORPHINE
     Indication: Product used for unknown indication
     Route: 065
  176. CELEBREX [Suspect]
     Active Substance: CELECOXIB
     Indication: Product used for unknown indication
     Dosage: 1 DOSAGE FORM, QD
     Route: 065
  177. CELEBREX [Suspect]
     Active Substance: CELECOXIB
     Dosage: 2 DOSAGE FORM, QD
     Route: 048
  178. CERTOLIZUMAB PEGOL [Suspect]
     Active Substance: CERTOLIZUMAB PEGOL
     Indication: Product used for unknown indication
     Route: 058
  179. CERTOLIZUMAB PEGOL [Suspect]
     Active Substance: CERTOLIZUMAB PEGOL
     Route: 058
  180. CERTOLIZUMAB PEGOL [Suspect]
     Active Substance: CERTOLIZUMAB PEGOL
     Route: 058
  181. CERTOLIZUMAB PEGOL [Suspect]
     Active Substance: CERTOLIZUMAB PEGOL
     Route: 065
  182. CERTOLIZUMAB PEGOL [Suspect]
     Active Substance: CERTOLIZUMAB PEGOL
     Route: 065
  183. CERTOLIZUMAB PEGOL [Suspect]
     Active Substance: CERTOLIZUMAB PEGOL
     Route: 065
  184. CETIRIZINE HYDROCHLORIDE [Suspect]
     Active Substance: CETIRIZINE HYDROCHLORIDE
     Indication: Rheumatoid arthritis
     Route: 048
  185. CETIRIZINE HYDROCHLORIDE [Suspect]
     Active Substance: CETIRIZINE HYDROCHLORIDE
     Route: 065
  186. CETIRIZINE HYDROCHLORIDE [Suspect]
     Active Substance: CETIRIZINE HYDROCHLORIDE
     Route: 048
  187. CETIRIZINE HYDROCHLORIDE [Suspect]
     Active Substance: CETIRIZINE HYDROCHLORIDE
     Route: 048
  188. CETIRIZINE HYDROCHLORIDE [Suspect]
     Active Substance: CETIRIZINE HYDROCHLORIDE
     Route: 016
  189. CETIRIZINE HYDROCHLORIDE [Suspect]
     Active Substance: CETIRIZINE HYDROCHLORIDE
     Route: 065
  190. CETIRIZINE HYDROCHLORIDE [Suspect]
     Active Substance: CETIRIZINE HYDROCHLORIDE
     Route: 065
  191. CETIRIZINE HYDROCHLORIDE [Suspect]
     Active Substance: CETIRIZINE HYDROCHLORIDE
     Route: 065
  192. CETIRIZINE HYDROCHLORIDE [Suspect]
     Active Substance: CETIRIZINE HYDROCHLORIDE
     Route: 048
  193. CETIRIZINE HYDROCHLORIDE [Suspect]
     Active Substance: CETIRIZINE HYDROCHLORIDE
     Route: 065
  194. CETIRIZINE HYDROCHLORIDE [Suspect]
     Active Substance: CETIRIZINE HYDROCHLORIDE
     Route: 065
  195. CETIRIZINE HYDROCHLORIDE [Suspect]
     Active Substance: CETIRIZINE HYDROCHLORIDE
     Route: 065
  196. CETIRIZINE HYDROCHLORIDE [Suspect]
     Active Substance: CETIRIZINE HYDROCHLORIDE
     Route: 065
  197. CETIRIZINE HYDROCHLORIDE [Suspect]
     Active Substance: CETIRIZINE HYDROCHLORIDE
     Route: 065
  198. CETIRIZINE HYDROCHLORIDE [Suspect]
     Active Substance: CETIRIZINE HYDROCHLORIDE
     Route: 065
  199. CETIRIZINE HYDROCHLORIDE [Suspect]
     Active Substance: CETIRIZINE HYDROCHLORIDE
     Route: 065
  200. CETIRIZINE HYDROCHLORIDE [Suspect]
     Active Substance: CETIRIZINE HYDROCHLORIDE
     Route: 065
  201. CETIRIZINE HYDROCHLORIDE [Suspect]
     Active Substance: CETIRIZINE HYDROCHLORIDE
     Route: 065
  202. CETIRIZINE HYDROCHLORIDE [Suspect]
     Active Substance: CETIRIZINE HYDROCHLORIDE
     Route: 065
  203. CETIRIZINE HYDROCHLORIDE [Suspect]
     Active Substance: CETIRIZINE HYDROCHLORIDE
     Route: 065
  204. CETIRIZINE HYDROCHLORIDE [Suspect]
     Active Substance: CETIRIZINE HYDROCHLORIDE
     Route: 065
  205. CETIRIZINE HYDROCHLORIDE [Suspect]
     Active Substance: CETIRIZINE HYDROCHLORIDE
     Route: 065
  206. CETIRIZINE HYDROCHLORIDE [Suspect]
     Active Substance: CETIRIZINE HYDROCHLORIDE
     Route: 065
  207. CETIRIZINE HYDROCHLORIDE [Suspect]
     Active Substance: CETIRIZINE HYDROCHLORIDE
     Route: 065
  208. CHLORHEXIDINE GLUCONATE [Suspect]
     Active Substance: CHLORHEXIDINE GLUCONATE
     Indication: Product used for unknown indication
     Route: 065
  209. CHLORHEXIDINE GLUCONATE [Suspect]
     Active Substance: CHLORHEXIDINE GLUCONATE
     Route: 065
  210. CHLORHEXIDINE GLUCONATE [Suspect]
     Active Substance: CHLORHEXIDINE GLUCONATE
     Route: 065
  211. CHOLECALCIFEROL [Suspect]
     Active Substance: CHOLECALCIFEROL
     Indication: Product used for unknown indication
     Route: 065
  212. CIMZIA [Suspect]
     Active Substance: CERTOLIZUMAB PEGOL
     Indication: Rheumatoid arthritis
     Route: 058
  213. CIMZIA [Suspect]
     Active Substance: CERTOLIZUMAB PEGOL
     Indication: Psoriasis
     Route: 058
  214. CIMZIA [Suspect]
     Active Substance: CERTOLIZUMAB PEGOL
     Route: 058
  215. CIMZIA [Suspect]
     Active Substance: CERTOLIZUMAB PEGOL
     Route: 058
  216. CIMZIA [Suspect]
     Active Substance: CERTOLIZUMAB PEGOL
     Route: 058
  217. CIMZIA [Suspect]
     Active Substance: CERTOLIZUMAB PEGOL
     Route: 065
  218. CIMZIA [Suspect]
     Active Substance: CERTOLIZUMAB PEGOL
     Route: 065
  219. CIMZIA [Suspect]
     Active Substance: CERTOLIZUMAB PEGOL
     Route: 065
  220. CIMZIA [Suspect]
     Active Substance: CERTOLIZUMAB PEGOL
     Route: 065
  221. DESOXIMETASONE [Suspect]
     Active Substance: DESOXIMETASONE
     Indication: Rheumatoid arthritis
     Route: 048
  222. DESOXIMETASONE [Suspect]
     Active Substance: DESOXIMETASONE
     Route: 048
  223. DESOXIMETASONE [Suspect]
     Active Substance: DESOXIMETASONE
     Route: 065
  224. DESOXIMETASONE [Suspect]
     Active Substance: DESOXIMETASONE
     Route: 058
  225. DESOXIMETASONE [Suspect]
     Active Substance: DESOXIMETASONE
     Route: 058
  226. DESOXIMETASONE [Suspect]
     Active Substance: DESOXIMETASONE
     Route: 065
  227. DESOXIMETASONE [Suspect]
     Active Substance: DESOXIMETASONE
     Route: 065
  228. DESOXIMETASONE [Suspect]
     Active Substance: DESOXIMETASONE
     Route: 065
  229. DESOXIMETASONE [Suspect]
     Active Substance: DESOXIMETASONE
     Route: 065
  230. DOMPERIDONE MALEATE [Suspect]
     Active Substance: DOMPERIDONE MALEATE
     Indication: Product used for unknown indication
     Route: 065
  231. FLUMETHASONE [Suspect]
     Active Substance: FLUMETHASONE
     Indication: Product used for unknown indication
     Route: 065
  232. FLUMETHASONE [Suspect]
     Active Substance: FLUMETHASONE
     Route: 065
  233. FLUMETHASONE [Suspect]
     Active Substance: FLUMETHASONE
     Route: 065
  234. FLUMETHASONE PIVALATE [Suspect]
     Active Substance: FLUMETHASONE PIVALATE
     Indication: Product used for unknown indication
     Route: 058
  235. FLUMETHASONE PIVALATE [Suspect]
     Active Substance: FLUMETHASONE PIVALATE
     Route: 058
  236. FLUMETHASONE PIVALATE [Suspect]
     Active Substance: FLUMETHASONE PIVALATE
     Route: 065
  237. FOLIC ACID [Suspect]
     Active Substance: FOLIC ACID
     Indication: Rheumatoid arthritis
     Route: 065
  238. FOLIC ACID [Suspect]
     Active Substance: FOLIC ACID
     Route: 065
  239. FOLIC ACID [Suspect]
     Active Substance: FOLIC ACID
     Route: 048
  240. FOLIC ACID [Suspect]
     Active Substance: FOLIC ACID
     Route: 065
  241. FOLIC ACID [Suspect]
     Active Substance: FOLIC ACID
     Route: 048
  242. FOLIC ACID [Suspect]
     Active Substance: FOLIC ACID
     Route: 065
  243. FOLIC ACID [Suspect]
     Active Substance: FOLIC ACID
     Route: 065
  244. FOLIC ACID [Suspect]
     Active Substance: FOLIC ACID
     Route: 058
  245. FOLIC ACID [Suspect]
     Active Substance: FOLIC ACID
     Route: 048
  246. FOLIC ACID [Suspect]
     Active Substance: FOLIC ACID
     Route: 065
  247. FOLIC ACID [Suspect]
     Active Substance: FOLIC ACID
     Route: 065
  248. FOLIC ACID [Suspect]
     Active Substance: FOLIC ACID
     Route: 048
  249. FOLIC ACID [Suspect]
     Active Substance: FOLIC ACID
     Route: 065
  250. FOLIC ACID [Suspect]
     Active Substance: FOLIC ACID
     Route: 048
  251. FOLIC ACID [Suspect]
     Active Substance: FOLIC ACID
     Route: 065
  252. FOLIC ACID [Suspect]
     Active Substance: FOLIC ACID
     Route: 065
  253. FOSAMAX [Suspect]
     Active Substance: ALENDRONATE SODIUM
     Indication: Rheumatoid arthritis
     Route: 065
  254. FOSAMAX [Suspect]
     Active Substance: ALENDRONATE SODIUM
     Route: 016
  255. FOSAMAX [Suspect]
     Active Substance: ALENDRONATE SODIUM
     Route: 058
  256. SULFASALAZINE [Suspect]
     Active Substance: SULFASALAZINE
     Indication: Rheumatoid arthritis
     Route: 065
  257. SIMPONI [Suspect]
     Active Substance: GOLIMUMAB
     Indication: Rheumatoid arthritis
     Route: 058
  258. SIMPONI [Suspect]
     Active Substance: GOLIMUMAB
     Route: 058
  259. SIMPONI [Suspect]
     Active Substance: GOLIMUMAB
     Route: 058
  260. SIMPONI [Suspect]
     Active Substance: GOLIMUMAB
     Route: 058
  261. SIMPONI [Suspect]
     Active Substance: GOLIMUMAB
     Route: 058
  262. SIMPONI [Suspect]
     Active Substance: GOLIMUMAB
     Route: 058
  263. SIMPONI [Suspect]
     Active Substance: GOLIMUMAB
     Route: 065
  264. SIMPONI [Suspect]
     Active Substance: GOLIMUMAB
     Route: 065
  265. SIRUKUMAB [Suspect]
     Active Substance: SIRUKUMAB
     Indication: Product used for unknown indication
     Route: 065
  266. GOLD SODIUM THIOMALATE [Suspect]
     Active Substance: GOLD SODIUM THIOMALATE
     Indication: Product used for unknown indication
     Route: 065
  267. GOLD SODIUM THIOMALATE [Suspect]
     Active Substance: GOLD SODIUM THIOMALATE
     Route: 048
  268. GOLD SODIUM THIOMALATE [Suspect]
     Active Substance: GOLD SODIUM THIOMALATE
     Route: 048
  269. SULFASALAZINE [Suspect]
     Active Substance: SULFASALAZINE
     Indication: Rheumatoid arthritis
     Dosage: 2 DOSAGE FORM, QD
     Route: 048
  270. SULFASALAZINE [Suspect]
     Active Substance: SULFASALAZINE
     Dosage: 1000 MILLIGRAM, QD
     Route: 048
  271. SULFASALAZINE [Suspect]
     Active Substance: SULFASALAZINE
     Dosage: 2000 MILLIGRAM, QD
     Route: 048
  272. SULFASALAZINE [Suspect]
     Active Substance: SULFASALAZINE
     Route: 065
  273. SULFASALAZINE [Suspect]
     Active Substance: SULFASALAZINE
     Route: 058
  274. SULFASALAZINE [Suspect]
     Active Substance: SULFASALAZINE
     Route: 065
  275. SULFASALAZINE [Suspect]
     Active Substance: SULFASALAZINE
     Dosage: 2 GRAM, QD
     Route: 058
  276. SULFASALAZINE [Suspect]
     Active Substance: SULFASALAZINE
     Route: 065
  277. SULFASALAZINE [Suspect]
     Active Substance: SULFASALAZINE
     Route: 065
  278. SULFASALAZINE [Suspect]
     Active Substance: SULFASALAZINE
     Route: 058
  279. SULFASALAZINE [Suspect]
     Active Substance: SULFASALAZINE
     Route: 058
  280. SULFASALAZINE [Suspect]
     Active Substance: SULFASALAZINE
     Route: 048
  281. SULFASALAZINE [Suspect]
     Active Substance: SULFASALAZINE
     Dosage: 4 MILLIGRAM, QD
     Route: 058
  282. SULFASALAZINE [Suspect]
     Active Substance: SULFASALAZINE
     Route: 065
  283. SULFASALAZINE [Suspect]
     Active Substance: SULFASALAZINE
     Route: 065
  284. SULFASALAZINE [Suspect]
     Active Substance: SULFASALAZINE
     Route: 065
  285. SULFASALAZINE [Suspect]
     Active Substance: SULFASALAZINE
     Route: 065
  286. SULFASALAZINE [Suspect]
     Active Substance: SULFASALAZINE
     Route: 058
  287. SULFASALAZINE [Suspect]
     Active Substance: SULFASALAZINE
     Dosage: 2 GRAM, QD
     Route: 065
  288. SULFASALAZINE [Suspect]
     Active Substance: SULFASALAZINE
     Dosage: 2 DOSAGE FORM, QD
     Route: 048
  289. SULFASALAZINE [Suspect]
     Active Substance: SULFASALAZINE
     Route: 016
  290. SULFASALAZINE [Suspect]
     Active Substance: SULFASALAZINE
     Dosage: 300 MILLIGRAM, QD
     Route: 065
  291. SULFASALAZINE [Suspect]
     Active Substance: SULFASALAZINE
     Route: 048
  292. SULFASALAZINE [Suspect]
     Active Substance: SULFASALAZINE
     Route: 048
  293. SULFASALAZINE [Suspect]
     Active Substance: SULFASALAZINE
     Route: 065
  294. AZATHIOPRINE [Suspect]
     Active Substance: AZATHIOPRINE
     Indication: Product used for unknown indication
     Route: 065
  295. CELECOXIB [Suspect]
     Active Substance: CELECOXIB
     Indication: Product used for unknown indication
     Dosage: 1 DOSAGE FORM, QD
     Route: 065
  296. CELECOXIB [Suspect]
     Active Substance: CELECOXIB
     Dosage: 2 DOSAGE FORM, QD
     Route: 048
  297. HYRIMOZ [Suspect]
     Active Substance: ADALIMUMAB-ADAZ
     Indication: Product used for unknown indication
     Route: 058
  298. HYRIMOZ [Suspect]
     Active Substance: ADALIMUMAB-ADAZ
     Route: 058
  299. HYRIMOZ [Suspect]
     Active Substance: ADALIMUMAB-ADAZ
     Route: 058
  300. ALENDRONATE SODIUM [Suspect]
     Active Substance: ALENDRONATE SODIUM
     Indication: Rheumatoid arthritis
     Route: 048
  301. ALENDRONATE SODIUM [Suspect]
     Active Substance: ALENDRONATE SODIUM
     Route: 048
  302. ALENDRONATE SODIUM [Suspect]
     Active Substance: ALENDRONATE SODIUM
     Route: 048
  303. ALENDRONATE SODIUM [Suspect]
     Active Substance: ALENDRONATE SODIUM
     Route: 016
  304. ALENDRONATE SODIUM [Suspect]
     Active Substance: ALENDRONATE SODIUM
     Route: 065
  305. ALENDRONATE SODIUM [Suspect]
     Active Substance: ALENDRONATE SODIUM
     Route: 065
  306. LEFLUNOMIDE [Suspect]
     Active Substance: LEFLUNOMIDE
     Indication: Rheumatoid arthritis
     Route: 065
  307. LEFLUNOMIDE [Suspect]
     Active Substance: LEFLUNOMIDE
     Dosage: 20 MILLIGRAM, QD
     Route: 065
  308. LEFLUNOMIDE [Suspect]
     Active Substance: LEFLUNOMIDE
     Dosage: 10 MILLIGRAM, QD
     Route: 065
  309. LEFLUNOMIDE [Suspect]
     Active Substance: LEFLUNOMIDE
     Dosage: 10 MILLIGRAM, QD
     Route: 048
  310. LEFLUNOMIDE [Suspect]
     Active Substance: LEFLUNOMIDE
     Route: 048
  311. LEFLUNOMIDE [Suspect]
     Active Substance: LEFLUNOMIDE
     Route: 048
  312. LEFLUNOMIDE [Suspect]
     Active Substance: LEFLUNOMIDE
     Route: 065
  313. LEFLUNOMIDE [Suspect]
     Active Substance: LEFLUNOMIDE
     Route: 065
  314. NAPROXEN [Concomitant]
     Active Substance: NAPROXEN
     Indication: Product used for unknown indication
     Dosage: 500 MG, QD
     Route: 065
  315. DESOGESTREL\ETHINYL ESTRADIOL [Concomitant]
     Active Substance: DESOGESTREL\ETHINYL ESTRADIOL
     Indication: Product used for unknown indication
     Route: 065

REACTIONS (35)
  - Abdominal distension [Fatal]
  - Adverse reaction [Fatal]
  - Back injury [Fatal]
  - Bursitis [Fatal]
  - Coeliac disease [Fatal]
  - Condition aggravated [Fatal]
  - Dyspepsia [Fatal]
  - Fall [Fatal]
  - Finger deformity [Fatal]
  - Folliculitis [Fatal]
  - Gait inability [Fatal]
  - Gastrointestinal disorder [Fatal]
  - Gastrooesophageal reflux disease [Fatal]
  - Grip strength decreased [Fatal]
  - Headache [Fatal]
  - Hepatitis [Fatal]
  - Hypoaesthesia [Fatal]
  - Inflammation [Fatal]
  - Injury [Fatal]
  - Insomnia [Fatal]
  - Intentional product use issue [Fatal]
  - Liver function test increased [Fatal]
  - Malaise [Fatal]
  - Mobility decreased [Fatal]
  - Muscular weakness [Fatal]
  - Musculoskeletal stiffness [Fatal]
  - Nail disorder [Fatal]
  - Neck pain [Fatal]
  - Off label use [Fatal]
  - Pain in extremity [Fatal]
  - Pneumonia [Fatal]
  - Product label confusion [Fatal]
  - Weight increased [Fatal]
  - Wheezing [Fatal]
  - Wound infection [Fatal]
